FAERS Safety Report 9712778 (Version 1)
Quarter: 2013Q4

REPORT INFORMATION
  Report Type: Spontaneous
  Country: US (occurrence: None)
  Receive Date: 20131125
  Receipt Date: 20131125
  Transmission Date: 20140711
  Serious: No
  Sender: FDA-Public Use
  Company Number: None

PATIENT
  Age: 15 Year
  Sex: Female
  Weight: 64.15 kg

DRUGS (3)
  1. BUSULFAN [Suspect]
     Dates: end: 20130804
  2. FLUDARABINE [Suspect]
     Dates: end: 20130804
  3. LYMPHOCYTE IMMUNE GLOBULIN [Suspect]
     Dates: end: 20130806

REACTIONS (11)
  - Pancytopenia [None]
  - Febrile neutropenia [None]
  - Blood culture positive [None]
  - Escherichia infection [None]
  - Graft versus host disease in skin [None]
  - Bone marrow failure [None]
  - Transplant failure [None]
  - Respiratory disorder [None]
  - Stenotrophomonas test positive [None]
  - Pulmonary haemorrhage [None]
  - Cardiac arrest [None]
